FAERS Safety Report 13918010 (Version 1)
Quarter: 2017Q3

REPORT INFORMATION
  Report Type: Spontaneous
  Country: US (occurrence: US)
  Receive Date: 20170829
  Receipt Date: 20170829
  Transmission Date: 20171127
  Serious: No
  Sender: FDA-Public Use
  Company Number: US-SA-2016SA220065

PATIENT
  Age: 51 Year
  Sex: Female
  Weight: 104.32 kg

DRUGS (15)
  1. DIPHENHYDRAMINE. [Concomitant]
     Active Substance: DIPHENHYDRAMINE
     Indication: PREMEDICATION
     Dosage: DOSE:50 MILLIGRAM(S)/MILLILITRE
     Route: 042
     Dates: start: 20160202
  2. LORATADINE. [Concomitant]
     Active Substance: LORATADINE
     Route: 048
     Dates: start: 20140912
  3. HEPARIN [Concomitant]
     Active Substance: HEPARIN SODIUM
     Indication: FLUSHING
     Dosage: DOSE: 10 UN/ML AS DIRECTED
     Route: 042
     Dates: start: 20160202
  4. EPIPEN [Concomitant]
     Active Substance: EPINEPHRINE
     Indication: ANAPHYLACTIC REACTION
     Route: 030
     Dates: start: 20160202
  5. PROMETHAZINE [Concomitant]
     Active Substance: PROMETHAZINE\PROMETHAZINE HYDROCHLORIDE
     Dosage: EVERY 8 HOURS AS NEEDED
     Route: 048
     Dates: start: 20140722
  6. CORTISONE ACETATE. [Concomitant]
     Active Substance: CORTISONE ACETATE
     Dosage: AS DIRECTED
     Route: 058
     Dates: start: 20160830
  7. ZITHROMAX [Concomitant]
     Active Substance: AZITHROMYCIN DIHYDRATE
     Dosage: 1 PACK AS DIRECTED
     Route: 048
     Dates: start: 20160120
  8. CYANOCOBALAMIN. [Concomitant]
     Active Substance: CYANOCOBALAMIN
     Dosage: EVERY MONTH AS DIRECTED
     Dates: start: 20121011
  9. NORMAL SALINE [Concomitant]
     Active Substance: SODIUM CHLORIDE
     Dosage: AS DIRECTED
     Route: 042
     Dates: start: 20160202
  10. NORTRIPTYLINE [Concomitant]
     Active Substance: NORTRIPTYLINE
     Route: 048
     Dates: start: 20150805
  11. LISINOPRIL. [Concomitant]
     Active Substance: LISINOPRIL
     Route: 048
     Dates: start: 20110526
  12. NEXIUM [Concomitant]
     Active Substance: ESOMEPRAZOLE MAGNESIUM
     Route: 048
     Dates: start: 20110526
  13. FABRAZYME [Suspect]
     Active Substance: AGALSIDASE BETA
     Indication: FABRY^S DISEASE
     Dosage: EVERY 10 DAYS
     Route: 041
  14. FOLIC ACID. [Concomitant]
     Active Substance: FOLIC ACID
     Route: 048
     Dates: start: 20121011
  15. TESSALON [Concomitant]
     Active Substance: BENZONATATE
     Dosage: AS DIRECTED
     Route: 048
     Dates: start: 20160120

REACTIONS (1)
  - Oral herpes [Unknown]
